FAERS Safety Report 8370280-9 (Version None)
Quarter: 2012Q2

REPORT INFORMATION
  Report Type: 
  Country: None (occurrence: None)
  Receive Date: 20120518
  Receipt Date: 20110719
  Transmission Date: 20120825
  Serious: No
  Sender: FDA-Public Use
  Company Number: US-ASTRAZENECA-2011SE51208

PATIENT
  Sex: Female

DRUGS (4)
  1. PRILOSEC OTC [Suspect]
     Route: 048
     Dates: start: 20110708
  2. ANTIHYPERTENSIVES [Concomitant]
     Dosage: UNKNOWN
  3. MULTI-VITAMINS [Concomitant]
     Dosage: UNKNOWN
  4. SYNTHROID [Concomitant]
     Dosage: UNKNOWN

REACTIONS (4)
  - INAPPROPRIATE SCHEDULE OF DRUG ADMINISTRATION [None]
  - FREQUENT BOWEL MOVEMENTS [None]
  - BACK PAIN [None]
  - DIARRHOEA [None]
